FAERS Safety Report 19087281 (Version 1)
Quarter: 2021Q2

REPORT INFORMATION
  Report Type: Spontaneous
  Country: US (occurrence: US)
  Receive Date: 20210402
  Receipt Date: 20210402
  Transmission Date: 20210717
  Serious: Yes (Other)
  Sender: FDA-Public Use
  Company Number: None

PATIENT
  Age: 70 Year
  Sex: Male
  Weight: 81 kg

DRUGS (2)
  1. PROTAMINE SULFATE. [Suspect]
     Active Substance: PROTAMINE SULFATE
     Indication: PROCOAGULANT THERAPY
     Dosage: ?          OTHER FREQUENCY:ONCE;?
     Route: 040
     Dates: start: 20210319, end: 20210319
  2. HEPARIN 24,000 UNITS IV [Concomitant]
     Dates: start: 20210319, end: 20210319

REACTIONS (3)
  - Product measured potency issue [None]
  - Heart transplant [None]
  - Incorrect dose administered [None]

NARRATIVE: CASE EVENT DATE: 20210319
